FAERS Safety Report 5051857-5 (Version None)
Quarter: 2006Q3

REPORT INFORMATION
  Report Type: 
  Country: None (occurrence: None)
  Receive Date: 20060714
  Receipt Date: 20060705
  Transmission Date: 20061208
  Serious: Yes (Death, Hospitalization)
  Sender: FDA-Public Use
  Company Number: US-ABBOTT-06P-163-0337522-00

PATIENT
  Sex: Male

DRUGS (1)
  1. BIAXIN XL [Suspect]
     Indication: PNEUMONIA
     Route: 048
     Dates: start: 20030101

REACTIONS (2)
  - HEPATIC CIRRHOSIS [None]
  - LIVER FUNCTION TEST ABNORMAL [None]
